FAERS Safety Report 11344791 (Version 6)
Quarter: 2015Q4

REPORT INFORMATION
  Report Type: Spontaneous
  Country: US (occurrence: US)
  Receive Date: 20150806
  Receipt Date: 20151223
  Transmission Date: 20160304
  Serious: Yes (Other)
  Sender: FDA-Public Use
  Company Number: US-GLAXOSMITHKLINE-US2015111391

PATIENT
  Age: 61 Year
  Sex: Female

DRUGS (1)
  1. ABREVA [Suspect]
     Active Substance: DOCOSANOL
     Indication: ORAL HERPES
     Dosage: UNK
     Dates: start: 20150731, end: 20150801

REACTIONS (15)
  - Hypoaesthesia oral [Recovered/Resolved]
  - Hyperlipidaemia [Unknown]
  - Paraesthesia [Unknown]
  - Peripheral coldness [Unknown]
  - Aphasia [Recovered/Resolved]
  - Cerebrovascular accident [Recovered/Resolved]
  - Chest pain [Unknown]
  - Essential hypertension [Unknown]
  - Dyspnoea [Unknown]
  - Feeling cold [Unknown]
  - Drug administration error [Unknown]
  - Transient ischaemic attack [Unknown]
  - Hypoaesthesia [Recovered/Resolved]
  - Dysphonia [Unknown]
  - Hypersensitivity [Recovered/Resolved]

NARRATIVE: CASE EVENT DATE: 20150802
